FAERS Safety Report 14951195 (Version 1)
Quarter: 2018Q2

REPORT INFORMATION
  Report Type: Spontaneous
  Country: US (occurrence: US)
  Receive Date: 20180508
  Receipt Date: 20180508
  Transmission Date: 20180711
  Serious: Yes (Other)
  Sender: FDA-Public Use
  Company Number: None

PATIENT
  Age: 39 Year
  Sex: Female

DRUGS (1)
  1. GLATIRAMER 40MG MYLAN [Suspect]
     Active Substance: GLATIRAMER
     Indication: MULTIPLE SCLEROSIS
     Route: 058
     Dates: start: 20180429, end: 20180501

REACTIONS (5)
  - Feeling abnormal [None]
  - Rash [None]
  - Product substitution issue [None]
  - Chest discomfort [None]
  - Disturbance in attention [None]

NARRATIVE: CASE EVENT DATE: 20180429
